FAERS Safety Report 10142587 (Version 1)
Quarter: 2014Q2

REPORT INFORMATION
  Report Type: Spontaneous
  Country: DE (occurrence: None)
  Receive Date: 20140425
  Receipt Date: 20140425
  Transmission Date: 20141212
  Serious: Yes (Other)
  Sender: FDA-Public Use
  Company Number: AUR-APL-2014-04950

PATIENT
  Age: 66 Year
  Sex: Female
  Weight: 87 kg

DRUGS (3)
  1. CEFUROXIME (CEFUROXIME) [Suspect]
     Indication: BRONCHITIS
     Dosage: 1000MG (500MG 2 IN 1 D) ORAL
     Route: 048
     Dates: start: 20140302, end: 20140403
  2. PANTOPRAZOL (PANTO PRAZOLE SODIUM) [Concomitant]
  3. FSME IMMUN (TICK B-ORINE ENCEPHALITIS VACCINE) [Concomitant]

REACTIONS (3)
  - Monoparesis [None]
  - Speech disorder [None]
  - Neurologic neglect syndrome [None]
